FAERS Safety Report 19398733 (Version 2)
Quarter: 2021Q2

REPORT INFORMATION
  Report Type: Spontaneous
  Country: US (occurrence: US)
  Receive Date: 20210610
  Receipt Date: 20210614
  Transmission Date: 20210717
  Serious: Yes (Hospitalization)
  Sender: FDA-Public Use
  Company Number: US-TEVA-2021-US-1920715

PATIENT
  Age: 45 Year
  Sex: Male

DRUGS (2)
  1. GUAIFENESIN W/ DEXTROMETHORPHAN [Suspect]
     Active Substance: DEXTROMETHORPHAN\GUAIFENESIN
     Indication: COUGH
     Dosage: 600 MG / 30 MG
     Route: 065
     Dates: start: 2021
  2. GUAIFENESIN W/ DEXTROMETHORPHAN [Suspect]
     Active Substance: DEXTROMETHORPHAN\GUAIFENESIN
     Indication: CARDIAC FAILURE CONGESTIVE

REACTIONS (5)
  - Therapy non-responder [Unknown]
  - Cardiomyopathy [Unknown]
  - Drug ineffective for unapproved indication [Unknown]
  - Ejection fraction decreased [Unknown]
  - Dyspnoea [Unknown]

NARRATIVE: CASE EVENT DATE: 2021
